FAERS Safety Report 17875717 (Version 1)
Quarter: 2020Q2

REPORT INFORMATION
  Report Type: Spontaneous
  Country: CA (occurrence: CA)
  Receive Date: 20200609
  Receipt Date: 20200609
  Transmission Date: 20200714
  Serious: Yes (Other)
  Sender: FDA-Public Use
  Company Number: CA-SA-2020SA138606

PATIENT

DRUGS (2)
  1. AFLIBERCEPT [Suspect]
     Active Substance: AFLIBERCEPT
     Dosage: UNK
     Route: 065
  2. SULFUR. [Concomitant]
     Active Substance: SULFUR
     Dosage: UNK
     Route: 065

REACTIONS (2)
  - Macular hole [Recovered/Resolved]
  - Visual acuity reduced [Recovered/Resolved]
